FAERS Safety Report 20544967 (Version 2)
Quarter: 2022Q1

REPORT INFORMATION
  Report Type: Report from Study
  Country: CA (occurrence: CA)
  Receive Date: 20220303
  Receipt Date: 20220330
  Transmission Date: 20220423
  Serious: Yes (Other)
  Sender: FDA-Public Use
  Company Number: CA-JNJFOC-20220241450

PATIENT
  Age: 52 Year
  Sex: Female

DRUGS (2)
  1. STELARA [Suspect]
     Active Substance: USTEKINUMAB
     Indication: Crohn^s disease
     Dosage: ON 21-AUG-2020 PATIENT RECEIVED STELARA INJECTION.
     Route: 058
     Dates: start: 20181220
  2. STELARA [Suspect]
     Active Substance: USTEKINUMAB

REACTIONS (8)
  - Crohn^s disease [Not Recovered/Not Resolved]
  - Groin abscess [Recovering/Resolving]
  - COVID-19 [Recovering/Resolving]
  - Pain in extremity [Unknown]
  - Pain of skin [Unknown]
  - Abdominal pain lower [Unknown]
  - Dizziness [Recovered/Resolved]
  - Drug ineffective [Unknown]

NARRATIVE: CASE EVENT DATE: 20220201
